FAERS Safety Report 7075654-4 (Version None)
Quarter: 2010Q4

REPORT INFORMATION
  Report Type: 
  Country: None (occurrence: None)
  Receive Date: 20101030
  Receipt Date: 20101018
  Transmission Date: 20110411
  Serious: Yes (Hospitalization)
  Sender: FDA-Public Use
  Company Number: US-WYE-H18204310

PATIENT
  Sex: Male
  Weight: 73.55 kg

DRUGS (3)
  1. PRISTIQ [Suspect]
     Indication: ANXIETY
     Route: 048
     Dates: start: 20100801, end: 20101014
  2. PRISTIQ [Suspect]
     Indication: DEPRESSION
  3. IMITREX [Concomitant]
     Indication: MIGRAINE
     Dosage: PRN

REACTIONS (3)
  - CONVULSION [None]
  - DEPRESSED MOOD [None]
  - DRUG WITHDRAWAL SYNDROME [None]
